FAERS Safety Report 23962619 (Version 1)
Quarter: 2024Q2

REPORT INFORMATION
  Report Type: Spontaneous
  Country: BG (occurrence: BG)
  Receive Date: 20240611
  Receipt Date: 20240611
  Transmission Date: 20240715
  Serious: Yes (Hospitalization, Other)
  Sender: FDA-Public Use
  Company Number: BG-AMGEN-BGRSP2024109882

PATIENT
  Age: 59 Year
  Sex: Male

DRUGS (13)
  1. REPATHA [Suspect]
     Active Substance: EVOLOCUMAB
     Indication: Product used for unknown indication
     Dosage: 140 MG EVOLOCUMAB IN 1 ML SOLUTION FOR INJECTION
     Route: 065
     Dates: start: 202201
  2. CANDESARTAN CILEXETIL\HYDROCHLOROTHIAZIDE [Concomitant]
     Active Substance: CANDESARTAN CILEXETIL\HYDROCHLOROTHIAZIDE
     Indication: Acute coronary syndrome
     Dosage: 8/12.5 MILLIGRAM, QD
     Route: 065
  3. Amlodipine + atorvastatin [Concomitant]
     Indication: Acute coronary syndrome
     Dosage: 5/10 MILLIGRAM, QD
     Route: 065
  4. METFORMIN [Concomitant]
     Active Substance: METFORMIN HYDROCHLORIDE
     Dosage: 2 X 1000 MILLIGRAM
     Route: 065
  5. ATORVASTATIN [Concomitant]
     Active Substance: ATORVASTATIN
     Dosage: 40 MILLIGRAM, QD
  6. Ticagrelor spc [Concomitant]
     Dosage: 2 X 90 MILLIGRAM, QD
  7. BISOPROLOL [Concomitant]
     Active Substance: BISOPROLOL\BISOPROLOL FUMARATE
     Dosage: 2.5 MILLIGRAM
  8. AMLODIPINE\PERINDOPRIL [Concomitant]
     Active Substance: AMLODIPINE\PERINDOPRIL
     Dosage: 10/8 MILLIGRAM
  9. ROSUVASTATIN [Concomitant]
     Active Substance: ROSUVASTATIN
     Dosage: 20 MILLIGRAM, QD
  10. ATORVASTATIN CALCIUM;FENOFIBRATE [Concomitant]
     Dosage: 40/145 MILLIGRAM
     Route: 065
  11. EZETIMIBE\ROSUVASTATIN [Concomitant]
     Active Substance: EZETIMIBE\ROSUVASTATIN
     Dosage: 10/20 MILLIGRAM
  12. ACETISAL [Concomitant]
     Dosage: 100 MILLIGRAM
  13. FENOFIBRATE S [Concomitant]
     Dosage: 160 MILLIGRAM, QD

REACTIONS (2)
  - Angina pectoris [Unknown]
  - Coronary artery occlusion [Unknown]

NARRATIVE: CASE EVENT DATE: 20220101
